FAERS Safety Report 19623475 (Version 1)
Quarter: 2021Q3

REPORT INFORMATION
  Report Type: Report from Study
  Country: None (occurrence: TW)
  Receive Date: 20210729
  Receipt Date: 20210729
  Transmission Date: 20211014
  Serious: Yes (Hospitalization)
  Sender: FDA-Public Use
  Company Number: TW-ABBVIE-21K-153-4008414-00

PATIENT
  Age: 58 Year
  Sex: Male
  Weight: 67 kg

DRUGS (2)
  1. HUMIRA [Suspect]
     Active Substance: ADALIMUMAB
     Indication: RHEUMATOID ARTHRITIS
     Route: 058
     Dates: start: 20151117, end: 20171031
  2. HUMIRA [Suspect]
     Active Substance: ADALIMUMAB
     Indication: RHEUMATOID ARTHRITIS
     Route: 058
     Dates: start: 20171205, end: 20210624

REACTIONS (10)
  - Tumour of ampulla of Vater [Unknown]
  - Biliary dilatation [Unknown]
  - Bile duct adenocarcinoma [Recovering/Resolving]
  - Cholangitis acute [Recovering/Resolving]
  - Gastrooesophageal reflux disease [Unknown]
  - Abdominal pain upper [Unknown]
  - C-reactive protein increased [Unknown]
  - Jaundice [Unknown]
  - Gastritis erosive [Unknown]
  - Pyrexia [Recovering/Resolving]

NARRATIVE: CASE EVENT DATE: 20210709
